FAERS Safety Report 10150874 (Version 1)
Quarter: 2014Q2

REPORT INFORMATION
  Report Type: Report from Study
  Country: CA (occurrence: CA)
  Receive Date: 20140502
  Receipt Date: 20140502
  Transmission Date: 20141212
  Serious: Yes (Hospitalization)
  Sender: FDA-Public Use
  Company Number: CA-ABBVIE-14P-028-1231203-00

PATIENT
  Sex: Female
  Weight: 68 kg

DRUGS (3)
  1. KALETRA [Suspect]
     Indication: HIV INFECTION
     Dosage: UNIT DOSE : 2 TABLETS OF 200MG / 50MG = 400MG / 100MG
     Route: 048
     Dates: start: 20131126
  2. RISPERIDONE [Concomitant]
     Indication: MENTAL DISORDER
     Route: 048
     Dates: start: 201311
  3. TRUVADA [Concomitant]
     Indication: HIV INFECTION
     Dosage: UNIT DOSE : 200MG / 300MG
     Route: 048

REACTIONS (1)
  - Hallucination, auditory [Recovering/Resolving]
